FAERS Safety Report 20955561 (Version 1)
Quarter: 2022Q2

REPORT INFORMATION
  Report Type: Spontaneous
  Country: GB (occurrence: GB)
  Receive Date: 20220614
  Receipt Date: 20220614
  Transmission Date: 20220721
  Serious: Yes (Hospitalization, Other)
  Sender: FDA-Public Use
  Company Number: GB-BRISTOL-MYERS SQUIBB COMPANY-2022-054245

PATIENT
  Sex: Male

DRUGS (26)
  1. EFAVIRENZ [Suspect]
     Active Substance: EFAVIRENZ
     Indication: Product used for unknown indication
     Dosage: STRENGTH 600 (UNSPECIFIED UNIT)
     Route: 065
  2. EFAVIRENZ [Suspect]
     Active Substance: EFAVIRENZ
     Route: 065
  3. EFAVIRENZ [Suspect]
     Active Substance: EFAVIRENZ
     Route: 065
  4. EFAVIRENZ [Suspect]
     Active Substance: EFAVIRENZ
     Route: 065
  5. EFAVIRENZ [Suspect]
     Active Substance: EFAVIRENZ
     Route: 065
  6. LAMIVUDINE [Suspect]
     Active Substance: LAMIVUDINE
     Indication: Product used for unknown indication
     Route: 065
  7. LAMIVUDINE [Suspect]
     Active Substance: LAMIVUDINE
     Route: 065
  8. LAMIVUDINE [Suspect]
     Active Substance: LAMIVUDINE
     Route: 065
  9. LAMIVUDINE [Suspect]
     Active Substance: LAMIVUDINE
     Route: 065
  10. LAMIVUDINE [Suspect]
     Active Substance: LAMIVUDINE
     Route: 065
  11. LAMIVUDINE [Suspect]
     Active Substance: LAMIVUDINE
     Route: 065
  12. LAMIVUDINE [Suspect]
     Active Substance: LAMIVUDINE
     Indication: Product used for unknown indication
     Dosage: QD (100 OD)
     Route: 065
  13. LAMIVUDINE [Suspect]
     Active Substance: LAMIVUDINE
     Route: 065
  14. LAMIVUDINE [Suspect]
     Active Substance: LAMIVUDINE
     Route: 065
  15. LAMIVUDINE [Suspect]
     Active Substance: LAMIVUDINE
     Route: 065
  16. LAMIVUDINE [Suspect]
     Active Substance: LAMIVUDINE
     Route: 065
  17. LAMIVUDINE [Suspect]
     Active Substance: LAMIVUDINE
     Route: 065
  18. ABACAVIR [Suspect]
     Active Substance: ABACAVIR
     Indication: Product used for unknown indication
     Route: 065
  19. ABACAVIR [Suspect]
     Active Substance: ABACAVIR
     Route: 065
  20. ABACAVIR [Suspect]
     Active Substance: ABACAVIR
     Route: 065
  21. ABACAVIR [Suspect]
     Active Substance: ABACAVIR
     Route: 065
  22. ABACAVIR [Suspect]
     Active Substance: ABACAVIR
     Route: 065
  23. ABACAVIR [Suspect]
     Active Substance: ABACAVIR
     Route: 065
  24. ABACAVIR [Suspect]
     Active Substance: ABACAVIR
     Route: 065
  25. ABACAVIR [Suspect]
     Active Substance: ABACAVIR
     Route: 065
  26. ABACAVIR [Suspect]
     Active Substance: ABACAVIR
     Route: 065

REACTIONS (5)
  - Malaise [Unknown]
  - Feeling abnormal [Unknown]
  - Metastases to central nervous system [Unknown]
  - Life expectancy shortened [Not Recovered/Not Resolved]
  - Lung cancer metastatic [Unknown]
